FAERS Safety Report 26217769 (Version 1)
Quarter: 2025Q4

REPORT INFORMATION
  Report Type: Spontaneous
  Country: US (occurrence: US)
  Receive Date: 20251231
  Receipt Date: 20251231
  Transmission Date: 20260117
  Serious: No
  Sender: SANDOZ
  Company Number: US-INCYTE CORPORATION-2025IN014224

PATIENT
  Age: 50 Year
  Sex: Male

DRUGS (2)
  1. METFORMIN [Suspect]
     Active Substance: METFORMIN HYDROCHLORIDE
     Indication: Product used for unknown indication
     Dosage: 500 MG, TABLET
  2. JAKAFI [Suspect]
     Active Substance: RUXOLITINIB
     Indication: Myelofibrosis
     Dosage: 15 MG, BID ((TAKE 1 TABLET (15 MG TOTAL) BY MOUTH 2 TIMES A DAY))
     Dates: start: 20251021

REACTIONS (2)
  - Faeces hard [Unknown]
  - Dyschezia [Unknown]

NARRATIVE: CASE EVENT DATE: 20251021
